FAERS Safety Report 7812907-3 (Version None)
Quarter: 2011Q4

REPORT INFORMATION
  Report Type: 
  Country: None (occurrence: None)
  Receive Date: 20111013
  Receipt Date: 20111006
  Transmission Date: 20120403
  Serious: Yes (Hospitalization)
  Sender: FDA-Public Use
  Company Number: US-AMGEN-USACT2011051808

PATIENT
  Age: 61 Year
  Sex: Female

DRUGS (4)
  1. INSULIN [Concomitant]
     Dosage: UNK
     Dates: end: 20110825
  2. BLINDED DARBEPOETIN ALFA [Suspect]
     Indication: CARDIAC FAILURE
     Dosage: UNK UNK, Q2WK
     Route: 058
     Dates: start: 20070205
  3. LOSARTAN POTASSIUM [Concomitant]
  4. BLINDED PLACEBO [Suspect]
     Indication: CARDIAC FAILURE
     Dosage: UNK UNK, Q2WK
     Route: 058
     Dates: start: 20070205

REACTIONS (2)
  - RENAL FAILURE [None]
  - HAEMODIALYSIS [None]
